FAERS Safety Report 5733737-2 (Version None)
Quarter: 2008Q2

REPORT INFORMATION
  Report Type: 
  Country: None (occurrence: None)
  Receive Date: 20080509
  Receipt Date: 20080507
  Transmission Date: 20081010
  Serious: Yes (Death, Other)
  Sender: FDA-Public Use
  Company Number: US-ASTRAZENECA-2006UW11812

PATIENT
  Sex: Female
  Weight: 50 kg

DRUGS (11)
  1. SEROQUEL [Suspect]
     Indication: ANXIETY
     Route: 048
     Dates: start: 20041227, end: 20050209
  2. SEROQUEL [Suspect]
     Indication: DEPRESSION
     Route: 048
     Dates: start: 20041227, end: 20050209
  3. SEROQUEL [Suspect]
     Indication: BIPOLAR DISORDER
     Route: 048
     Dates: start: 20041227, end: 20050209
  4. SEROQUEL [Suspect]
     Route: 048
     Dates: start: 20041227, end: 20050209
  5. SEROQUEL [Suspect]
     Route: 048
     Dates: start: 20041227, end: 20050209
  6. SEROQUEL [Suspect]
     Route: 048
     Dates: start: 20041227, end: 20050209
  7. SEROQUEL [Suspect]
     Route: 048
     Dates: start: 20041108, end: 20050209
  8. SEROQUEL [Suspect]
     Route: 048
     Dates: start: 20041108, end: 20050209
  9. SEROQUEL [Suspect]
     Route: 048
     Dates: start: 20041108, end: 20050209
  10. ZYPREXA [Suspect]
  11. RISPERDAL [Concomitant]

REACTIONS (2)
  - DEATH [None]
  - PANCREATITIS [None]
